FAERS Safety Report 7132409-X (Version None)
Quarter: 2010Q4

REPORT INFORMATION
  Report Type: 
  Country: None (occurrence: None)
  Receive Date: 20101130
  Receipt Date: 20101130
  Transmission Date: 20110411
  Serious: Yes (Life-Threatening, Hospitalization, Disabling)
  Sender: FDA-Public Use
  Company Number: None

PATIENT
  Age: 6 Month
  Sex: Female
  Weight: 7.2576 kg

DRUGS (1)
  1. HYLANDS TEETHING TABLETS NONE HYLANDS [Suspect]
     Indication: TEETHING
     Dosage: 2-3 TABLETS 4 TIMES DAILY PO
     Route: 048
     Dates: start: 20100301, end: 20100626

REACTIONS (1)
  - CONVULSION [None]
